FAERS Safety Report 24682847 (Version 1)
Quarter: 2024Q4

REPORT INFORMATION
  Report Type: Spontaneous
  Country: GB (occurrence: GB)
  Receive Date: 20241201
  Receipt Date: 20241201
  Transmission Date: 20250114
  Serious: Yes (Other)
  Sender: AUROBINDO
  Company Number: GB-MHRA-TPP6319701C19462152YC1732027775231

PATIENT
  Age: 80 Year
  Sex: Male
  Weight: 88 kg

DRUGS (6)
  1. DOXAZOSIN [Suspect]
     Active Substance: DOXAZOSIN\DOXAZOSIN MESYLATE
     Indication: Ill-defined disorder
     Dosage: UNK
     Route: 065
     Dates: start: 20241119
  2. DOXYCYCLINE [Concomitant]
     Active Substance: DOXYCYCLINE
     Indication: Ill-defined disorder
     Dosage: 1 DOSAGE FORM, TWO TIMES A DAY( FOR 7 DAYS)
     Route: 065
     Dates: start: 20240828, end: 20240904
  3. DOXAZOSIN [Concomitant]
     Active Substance: DOXAZOSIN\DOXAZOSIN MESYLATE
     Indication: Ill-defined disorder
     Dosage: UNK(1 TABLET PER DAY. 3.2 IF AFTER 3 DAYS YOU DO NO...)
     Route: 065
     Dates: start: 20241105
  4. ATORVASTATIN [Concomitant]
     Active Substance: ATORVASTATIN
     Indication: Ill-defined disorder
     Dosage: 1 DOSAGE FORM, DAILY
     Route: 065
     Dates: start: 20240709
  5. MEBEVERINE HYDROCHLORIDE [Concomitant]
     Active Substance: MEBEVERINE HYDROCHLORIDE
     Indication: Ill-defined disorder
     Dosage: 1 DOSAGE FORM, 3 TIMES A DAY(20 MINS BEFORE FOOD. THIS ...)
     Route: 065
     Dates: start: 20240809, end: 20240828
  6. Mirabegron urufarma [Concomitant]
     Indication: Ill-defined disorder
     Dosage: 1 DOSAGE FORM, DAILY
     Route: 065
     Dates: start: 20240809

REACTIONS (1)
  - Headache [Unknown]

NARRATIVE: CASE EVENT DATE: 20241119
